FAERS Safety Report 10382158 (Version 3)
Quarter: 2014Q3

REPORT INFORMATION
  Report Type: Spontaneous
  Country: BR (occurrence: None)
  Receive Date: 20140811
  Receipt Date: 20140822
  Transmission Date: 20150326
  Serious: Yes (Hospitalization, Other)
  Sender: FDA-Public Use
  Company Number: 2014-002284

PATIENT
  Sex: Female

DRUGS (7)
  1. SERTRALINE [Concomitant]
     Active Substance: SERTRALINE HYDROCHLORIDE
  2. ENABLEX [Suspect]
     Active Substance: DARIFENACIN\DARIFENACIN HYDROBROMIDE
     Route: 048
     Dates: start: 20140709, end: 20140716
  3. OMEPRAZOL [Concomitant]
     Active Substance: OMEPRAZOLE
  4. PREDNISONA [Concomitant]
     Active Substance: PREDNISONE
  5. LEVOTIROXINA [Concomitant]
     Active Substance: LEVOTHYROXINE SODIUM
  6. CALTRATE+D [Concomitant]
  7. METHOTREXATE [Concomitant]
     Active Substance: METHOTREXATE

REACTIONS (6)
  - Pulmonary oedema [None]
  - Malaise [None]
  - Asphyxia [None]
  - Myocardial infarction [None]
  - Dyspnoea [None]
  - Choking [None]

NARRATIVE: CASE EVENT DATE: 20140727
